FAERS Safety Report 12987346 (Version 2)
Quarter: 2017Q1

REPORT INFORMATION
  Report Type: Spontaneous
  Country: FR (occurrence: FR)
  Receive Date: 20161130
  Receipt Date: 20170127
  Transmission Date: 20170428
  Serious: Yes (Other)
  Sender: FDA-Public Use
  Company Number: FR-BRISTOL-MYERS SQUIBB COMPANY-BMS-2016-100512

PATIENT
  Sex: Female

DRUGS (1)
  1. HYDREA [Suspect]
     Active Substance: HYDROXYUREA
     Indication: PLATELET COUNT INCREASED
     Dosage: UNK UNK, QD
     Route: 065

REACTIONS (1)
  - Ulcer [Unknown]
